FAERS Safety Report 4675594-1 (Version None)
Quarter: 2005Q2

REPORT INFORMATION
  Report Type: 
  Country: None (occurrence: None)
  Receive Date: 20050527
  Receipt Date: 20050421
  Transmission Date: 20051028
  Serious: Yes (Hospitalization)
  Sender: FDA-Public Use
  Company Number: US-BRISTOL-MYERS SQUIBB COMPANY-12942165

PATIENT
  Sex: Female

DRUGS (3)
  1. ABILIFY [Suspect]
     Dosage: INCREASED TO 10 MG TWICE DAILY
  2. WELLBUTRIN XL [Concomitant]
  3. STRATTERA [Concomitant]

REACTIONS (3)
  - AGGRESSION [None]
  - EYE MOVEMENT DISORDER [None]
  - TREMOR [None]
